FAERS Safety Report 7917526-6 (Version None)
Quarter: 2011Q4

REPORT INFORMATION
  Report Type: 
  Country: None (occurrence: None)
  Receive Date: 20111116
  Receipt Date: 20111112
  Transmission Date: 20120403
  Serious: Yes (Hospitalization)
  Sender: FDA-Public Use
  Company Number: IT-PFIZER INC-2011260342

PATIENT
  Age: 64 Year
  Sex: Male

DRUGS (3)
  1. ALLOPURINOL [Concomitant]
     Dosage: 300 MG, DAILY
     Route: 048
  2. ASPIRIN [Concomitant]
     Dosage: 100 MG, UNK
     Route: 048
  3. MEDROL [Suspect]
     Indication: MUSCULOSKELETAL PAIN
     Dosage: 16 MG, DAILY
     Route: 048
     Dates: start: 20110807, end: 20110828

REACTIONS (1)
  - DIABETES MELLITUS [None]
